FAERS Safety Report 10693169 (Version 3)
Quarter: 2015Q1

REPORT INFORMATION
  Report Type: Spontaneous
  Country: US (occurrence: US)
  Receive Date: 20150106
  Receipt Date: 20150223
  Transmission Date: 20150720
  Serious: Yes (Hospitalization, Congenital Anomaly)
  Sender: FDA-Public Use
  Company Number: US-APOTEX-2014AP006478

PATIENT
  Age: 0 Day
  Sex: Male

DRUGS (2)
  1. PHENERGAN [Concomitant]
     Active Substance: PROMETHAZINE HYDROCHLORIDE
     Indication: VOMITING
     Dosage: UNK
     Route: 064
     Dates: end: 1995
  2. PAXIL [Suspect]
     Active Substance: PAROXETINE HYDROCHLORIDE
     Indication: DEPRESSION
     Dosage: UNK
     Route: 064
     Dates: end: 1995

REACTIONS (5)
  - Speech disorder developmental [Unknown]
  - Foetal exposure during pregnancy [Unknown]
  - Atrial septal defect [Unknown]
  - Congenital astigmatism [Unknown]
  - Congenital cardiovascular anomaly [Unknown]

NARRATIVE: CASE EVENT DATE: 19960816
